FAERS Safety Report 8785869 (Version 2)
Quarter: 2015Q2

REPORT INFORMATION
  Report Type: Report from Study
  Country: US (occurrence: US)
  Receive Date: 20120914
  Receipt Date: 20150403
  Transmission Date: 20150821
  Serious: Yes (Death)
  Sender: FDA-Public Use
  Company Number: US-ROCHE-1127897

PATIENT
  Age: 71 Year
  Sex: Male

DRUGS (16)
  1. AVASTIN [Suspect]
     Active Substance: BEVACIZUMAB
     Indication: MALIGNANT URINARY TRACT NEOPLASM
  2. ARANESP [Concomitant]
     Active Substance: DARBEPOETIN ALFA
  3. XELODA [Suspect]
     Active Substance: CAPECITABINE
     Indication: RENAL CANCER
     Route: 048
     Dates: end: 2005
  4. XELODA [Suspect]
     Active Substance: CAPECITABINE
     Indication: MALIGNANT URINARY TRACT NEOPLASM
  5. GEMZAR [Concomitant]
     Active Substance: GEMCITABINE HYDROCHLORIDE
     Route: 042
     Dates: start: 20040701
  6. AVASTIN [Suspect]
     Active Substance: BEVACIZUMAB
     Indication: RENAL CANCER
     Route: 042
     Dates: start: 20071101
  7. ZOFRAN [Concomitant]
     Active Substance: ONDANSETRON HYDROCHLORIDE
  8. ASPIRIN. [Concomitant]
     Active Substance: ASPIRIN
     Route: 065
  9. TAXOTERE [Concomitant]
     Active Substance: DOCETAXEL
  10. COMPAZINE [Concomitant]
     Active Substance: PROCHLORPERAZINE MALEATE
  11. ONDANSETRON [Concomitant]
     Active Substance: ONDANSETRON
     Route: 042
  12. DEXAMETHASONE. [Concomitant]
     Active Substance: DEXAMETHASONE
     Route: 065
  13. RITALIN [Concomitant]
     Active Substance: METHYLPHENIDATE HYDROCHLORIDE
  14. LISINOPRIL. [Concomitant]
     Active Substance: LISINOPRIL
     Route: 065
  15. CISPLATIN. [Concomitant]
     Active Substance: CISPLATIN
     Route: 065
     Dates: start: 20040701
  16. PREVACID [Concomitant]
     Active Substance: LANSOPRAZOLE
     Route: 065

REACTIONS (21)
  - Death [Fatal]
  - Nausea [Recovering/Resolving]
  - Anaemia [Unknown]
  - Disease progression [Unknown]
  - Fatigue [Unknown]
  - Back pain [Unknown]
  - Off label use [Unknown]
  - Diarrhoea [Recovering/Resolving]
  - Haemoglobin decreased [Unknown]
  - Feeling abnormal [Unknown]
  - Bone marrow oedema [Unknown]
  - Paraesthesia oral [Recovering/Resolving]
  - Decreased appetite [Unknown]
  - Diarrhoea [Unknown]
  - Palmar-plantar erythrodysaesthesia syndrome [Unknown]
  - Erythema [Recovering/Resolving]
  - Pruritus [Recovering/Resolving]
  - Rash [Unknown]
  - Mucosal inflammation [Unknown]
  - Bradycardia [Unknown]
  - Neuralgia [Unknown]

NARRATIVE: CASE EVENT DATE: 200804
